FAERS Safety Report 7301011-9 (Version None)
Quarter: 2011Q1

REPORT INFORMATION
  Report Type: 
  Country: None (occurrence: None)
  Receive Date: 20110111
  Receipt Date: 20091203
  Transmission Date: 20110831
  Serious: Yes (Other)
  Sender: FDA-Public Use
  Company Number: 2009BH018762

PATIENT
  Age: 78 Year
  Sex: Female
  Weight: 45 kg

DRUGS (15)
  1. VANCOMYCIN HCL [Suspect]
     Indication: PNEUMONIA
     Dosage: 1 GM; IV
     Dates: start: 20091130, end: 20091130
  2. DUODEM UPGRAPH [Concomitant]
  3. LASIX [Concomitant]
  4. EXELON [Concomitant]
  5. ITRACONAZOLE [Concomitant]
  6. WARFARIN [Concomitant]
  7. LISINOPRIL [Concomitant]
  8. FAMOTIDINE [Concomitant]
  9. DIGOXIN [Concomitant]
  10. INSULIN DETEMIR [Concomitant]
  11. NOVOLOG [Concomitant]
  12. VANCOMYCIN HCL [Suspect]
  13. VANCOMYCIN [Suspect]
     Indication: PNEUMONIA
     Dosage: 750 MG; IV, 500 MG; IV
     Route: 042
     Dates: start: 20091201, end: 20091201
  14. VANCOMYCIN [Suspect]
     Indication: PNEUMONIA
     Dosage: 750 MG; IV, 500 MG; IV
     Route: 042
     Dates: start: 20091203, end: 20091203
  15. ASA [Concomitant]

REACTIONS (1)
  - RENAL FAILURE [None]
